FAERS Safety Report 9932601 (Version 2)
Quarter: 2014Q1

REPORT INFORMATION
  Report Type: Spontaneous
  Country: US (occurrence: US)
  Receive Date: 20140228
  Receipt Date: 20140228
  Transmission Date: 20141002
  Serious: No
  Sender: FDA-Public Use
  Company Number: US-ABBVIE-13P-163-1173377-00

PATIENT
  Age: 73 Year
  Sex: Female
  Weight: 65.83 kg

DRUGS (5)
  1. ANDROGEL [Suspect]
     Indication: BLOOD TESTOSTERONE DECREASED
     Dosage: UNKNOWN
  2. OMEPRAZOLE [Concomitant]
     Indication: ILL-DEFINED DISORDER
  3. ATENOLOL [Concomitant]
     Indication: HYPERTENSION
  4. LISINOPRIL [Concomitant]
     Indication: HYPERTENSION
  5. SIMVASTATIN [Concomitant]
     Indication: BLOOD CHOLESTEROL INCREASED

REACTIONS (7)
  - Libido increased [Not Recovered/Not Resolved]
  - Accidental exposure to product [Unknown]
  - Blood pressure increased [Unknown]
  - Paraesthesia oral [Unknown]
  - Bone density abnormal [Unknown]
  - Osteoporosis [Not Recovered/Not Resolved]
  - Mammogram abnormal [Not Recovered/Not Resolved]
